FAERS Safety Report 14818454 (Version 3)
Quarter: 2019Q1

REPORT INFORMATION
  Report Type: Spontaneous
  Country: US (occurrence: US)
  Receive Date: 20180427
  Receipt Date: 20190125
  Transmission Date: 20190417
  Serious: No
  Sender: FDA-Public Use
  Company Number: US-JNJFOC-20180415090

PATIENT
  Age: 38 Year
  Sex: Female

DRUGS (1)
  1. FENTANYL. [Suspect]
     Active Substance: FENTANYL
     Indication: FIBROMYALGIA
     Route: 062
     Dates: start: 2014

REACTIONS (4)
  - Withdrawal syndrome [Unknown]
  - Product adhesion issue [Unknown]
  - Pain [Unknown]
  - Inappropriate schedule of product administration [Unknown]

NARRATIVE: CASE EVENT DATE: 20180329
